FAERS Safety Report 5878852-8 (Version None)
Quarter: 2008Q3

REPORT INFORMATION
  Report Type: 
  Country: None (occurrence: None)
  Receive Date: 20080910
  Receipt Date: 20080826
  Transmission Date: 20090109
  Serious: Yes (Hospitalization)
  Sender: FDA-Public Use
  Company Number: 2008S1015501

PATIENT
  Age: 18 Year
  Sex: Female

DRUGS (3)
  1. AZATHIOPRINE [Suspect]
     Indication: CROHN'S DISEASE
     Dosage: 75 MG; 100MG, 125 MG;
  2. INFLIXIMAB [Suspect]
     Indication: CROHN'S DISEASE
     Dosage: 5 MG/KG; 10 MG/KG;
  3. PREDNISONE [Concomitant]

REACTIONS (8)
  - ACUTE RESPIRATORY DISTRESS SYNDROME [None]
  - BONE MARROW FAILURE [None]
  - DIARRHOEA [None]
  - EPSTEIN-BARR VIRUS INFECTION [None]
  - HEPATITIS [None]
  - HISTIOCYTOSIS HAEMATOPHAGIC [None]
  - INFECTIOUS MONONUCLEOSIS [None]
  - INFLUENZA LIKE ILLNESS [None]
